FAERS Safety Report 15664294 (Version 1)
Quarter: 2018Q4

REPORT INFORMATION
  Report Type: Spontaneous
  Country: IT (occurrence: IT)
  Receive Date: 20181128
  Receipt Date: 20181128
  Transmission Date: 20190205
  Serious: Yes (Hospitalization)
  Sender: FDA-Public Use
  Company Number: IT-BRISTOL-MYERS SQUIBB COMPANY-BMS-2018-111819

PATIENT
  Age: 84 Year
  Sex: Male
  Weight: 48 kg

DRUGS (1)
  1. COUMADIN [Suspect]
     Active Substance: WARFARIN SODIUM
     Indication: CARDIAC FIBRILLATION
     Dosage: 2.5 MG, PER DAY
     Route: 048
     Dates: start: 20180622, end: 20180910

REACTIONS (2)
  - Haematoma [Not Recovered/Not Resolved]
  - Urinary tract infection [Not Recovered/Not Resolved]

NARRATIVE: CASE EVENT DATE: 20180910
